FAERS Safety Report 19483717 (Version 2)
Quarter: 2021Q3

REPORT INFORMATION
  Report Type: Spontaneous
  Country: JP (occurrence: JP)
  Receive Date: 20210701
  Receipt Date: 20210827
  Transmission Date: 20211014
  Serious: Yes (Other)
  Sender: FDA-Public Use
  Company Number: JP-BAYER-2021-167252

PATIENT
  Age: 57 Year
  Sex: Male
  Weight: 89 kg

DRUGS (50)
  1. MYCOPHENOLATE MOFETIL. [Concomitant]
     Active Substance: MYCOPHENOLATE MOFETIL
     Indication: SYSTEMIC LUPUS ERYTHEMATOSUS
     Dosage: 2000MG/DAY
     Dates: start: 20200607
  2. CALCIUM PANTOTHENATE [Concomitant]
     Active Substance: CALCIUM PANTOTHENATE
     Dosage: 3TIMES DAILY, 1 TABLET
  3. TRANEXAMIC ACID. [Concomitant]
     Active Substance: TRANEXAMIC ACID
     Dosage: 3TIMES DAILY, 1 TABLET
  4. AMLODIPINE [Concomitant]
     Active Substance: AMLODIPINE BESYLATE
     Dosage: DAILY DOSE 5 MG
     Dates: start: 20190910, end: 20190924
  5. AMLODIPINE [Concomitant]
     Active Substance: AMLODIPINE BESYLATE
     Dosage: DAILY DOSE 7.5 MG
     Dates: start: 20190925, end: 20191003
  6. UPTRAVI [Concomitant]
     Active Substance: SELEXIPAG
     Dosage: DAILY DOSE 0.8 MG
     Dates: start: 20200813
  7. MYCOPHENOLATE MOFETIL. [Concomitant]
     Active Substance: MYCOPHENOLATE MOFETIL
     Indication: SYSTEMIC LUPUS ERYTHEMATOSUS
     Dosage: 1500MG/DAY
     Dates: start: 20200527, end: 20200616
  8. PREDONINE [Concomitant]
     Active Substance: PREDNISOLONE
     Indication: SYSTEMIC LUPUS ERYTHEMATOSUS
     Dosage: 25MG/DAY
     Dates: start: 20191120, end: 20191203
  9. BONALON [Concomitant]
     Active Substance: ALENDRONATE SODIUM
     Dosage: DAILY DOSE 35 MG
     Dates: start: 20190919
  10. CONIEL [Concomitant]
     Active Substance: BENIDIPINE HYDROCHLORIDE
     Dosage: DAILY DOSE 8 MG
     Dates: start: 20191011
  11. ADEMPAS [Suspect]
     Active Substance: RIOCIGUAT
     Indication: PULMONARY ARTERIAL HYPERTENSION
     Dosage: 0.5 MG, TID
     Route: 048
     Dates: start: 20191030, end: 20191119
  12. AMBRISENTAN [Concomitant]
     Active Substance: AMBRISENTAN
     Indication: PULMONARY ARTERIAL HYPERTENSION
     Dosage: 2.5MG/DAY
     Route: 048
     Dates: start: 20200219
  13. AMBRISENTAN [Concomitant]
     Active Substance: AMBRISENTAN
     Indication: PULMONARY ARTERIAL HYPERTENSION
     Dosage: 5MG/DAY
     Route: 048
     Dates: start: 20200319
  14. PREDONINE [Concomitant]
     Active Substance: PREDNISOLONE
     Indication: SYSTEMIC LUPUS ERYTHEMATOSUS
     Dosage: 12.5MG/DAY
     Dates: start: 20200507
  15. ASCORBIC ACID. [Concomitant]
     Active Substance: ASCORBIC ACID
     Dosage: 3TIMES DAILY, 1 TABLET
  16. AZOSEMIDE [Concomitant]
     Active Substance: AZOSEMIDE
     Dosage: DAILY DOSE 30 MG
     Dates: start: 20201224
  17. VOLIBRIS [Concomitant]
     Active Substance: AMBRISENTAN
     Dosage: DAILY DOSE 5 MG
     Dates: start: 20200304
  18. MICAMLO [Concomitant]
     Active Substance: AMLODIPINE BESYLATE\TELMISARTAN
     Dosage: UNK
     Dates: start: 20201224
  19. AMOXICILLIN. [Concomitant]
     Active Substance: AMOXICILLIN
     Dosage: UNK
     Dates: start: 20200813
  20. ADEMPAS [Suspect]
     Active Substance: RIOCIGUAT
     Indication: COLLAGEN DISORDER
     Dosage: 1 MG, TID
     Route: 048
     Dates: start: 20191120, end: 20191203
  21. ADEMPAS [Suspect]
     Active Substance: RIOCIGUAT
     Indication: PULMONARY ARTERIAL HYPERTENSION
     Dosage: 2 MG, TID
     Route: 048
     Dates: start: 20191218, end: 20200121
  22. MICARDIS [Concomitant]
     Active Substance: TELMISARTAN
     Dosage: DAILY DOSE 40 MG
     Dates: start: 20190925, end: 20191003
  23. MICARDIS [Concomitant]
     Active Substance: TELMISARTAN
     Dosage: DAILY DOSE 80 MG
     Dates: start: 20191004
  24. CRESTOR [Concomitant]
     Active Substance: ROSUVASTATIN CALCIUM
     Dosage: DAILY DOSE 2.5 MG
     Dates: start: 20201126
  25. AUGMENTIN BAMBINI [Concomitant]
     Active Substance: AMOXICILLIN\CLAVULANIC ACID
     Dosage: UNK
     Dates: start: 20200206
  26. BIO?THREE [Concomitant]
     Active Substance: HERBALS
     Dosage: 1 DF, TID
     Dates: start: 20200206, end: 20200812
  27. AMOXICILLIN AND CLAVULANATE POTASSIU. [Concomitant]
     Active Substance: AMOXICILLIN\CLAVULANATE POTASSIUM
     Dosage: UNK
     Dates: start: 20200813
  28. ADEMPAS [Suspect]
     Active Substance: RIOCIGUAT
     Indication: PULMONARY ARTERIAL HYPERTENSION
     Dosage: 1.5 MG, TID
     Route: 048
     Dates: start: 20191204, end: 20191217
  29. PREDONINE [Concomitant]
     Active Substance: PREDNISOLONE
     Indication: SYSTEMIC LUPUS ERYTHEMATOSUS
     Dosage: 30MG/DAY
     Dates: start: 20190919, end: 20191119
  30. BILANOA [Concomitant]
     Active Substance: BILASTINE
     Dosage: 1 TABLET PER DAY
  31. AMLODIPINE [Concomitant]
     Active Substance: AMLODIPINE BESYLATE
     Dosage: DAILY DOSE 7.5 MG
     Dates: start: 20200122, end: 20201126
  32. AZOSEMIDE [Concomitant]
     Active Substance: AZOSEMIDE
     Dosage: DAILY DOSE 30 MG
     Dates: start: 20191018
  33. VOLIBRIS [Concomitant]
     Active Substance: AMBRISENTAN
     Dosage: DAILY DOSE 2.5 MG
     Dates: start: 20200219, end: 20200303
  34. AUGMENTIN BAMBINI [Concomitant]
     Active Substance: AMOXICILLIN\CLAVULANIC ACID
     Dosage: UNK
     Dates: start: 20200813
  35. BIO?THREE [Concomitant]
     Active Substance: HERBALS
     Dosage: 1 DF, TID
     Dates: start: 20200813
  36. ADEMPAS [Suspect]
     Active Substance: RIOCIGUAT
     Indication: PULMONARY ARTERIAL HYPERTENSION
     Dosage: 2.5 MG, TID
     Dates: start: 20200122
  37. SELEXIPAG [Concomitant]
     Active Substance: SELEXIPAG
     Indication: PULMONARY ARTERIAL HYPERTENSION
     Dosage: 0.8MG/DAY
     Route: 048
     Dates: start: 20200719
  38. PREDONINE [Concomitant]
     Active Substance: PREDNISOLONE
     Indication: SYSTEMIC LUPUS ERYTHEMATOSUS
     Dosage: 15MG/DAY
     Dates: start: 20191218, end: 20200506
  39. AMLODIPINE [Concomitant]
     Active Substance: AMLODIPINE BESYLATE
     Dosage: DAILY DOSE 10 MG
     Dates: start: 20191004, end: 20200121
  40. DAIPHEN [Concomitant]
     Active Substance: SULFAMETHOXAZOLE\TRIMETHOPRIM
     Dosage: DAILY DOSE 1 DF
     Dates: start: 20190919
  41. AZOSEMIDE [Concomitant]
     Active Substance: AZOSEMIDE
     Dosage: DAILY DOSE 60 MG
     Dates: end: 20201223
  42. UPTRAVI [Concomitant]
     Active Substance: SELEXIPAG
     Dosage: DAILY DOSE 0.4 MG
     Dates: start: 20200715, end: 20200812
  43. AMOXICILLIN. [Concomitant]
     Active Substance: AMOXICILLIN
     Dosage: UNK
     Dates: start: 20200206
  44. AMOXICILLIN AND CLAVULANATE POTASSIU. [Concomitant]
     Active Substance: AMOXICILLIN\CLAVULANATE POTASSIUM
     Dosage: UNK
     Dates: start: 20200206, end: 20200812
  45. SELEXIPAG [Concomitant]
     Active Substance: SELEXIPAG
     Indication: PULMONARY ARTERIAL HYPERTENSION
     Dosage: 0.4MG/DAY
     Route: 048
     Dates: start: 20200719
  46. BELIMUMAB [Concomitant]
     Active Substance: BELIMUMAB
     Indication: SYSTEMIC LUPUS ERYTHEMATOSUS
     Dosage: 200MG/DAY
     Dates: start: 20200902
  47. PREDONINE [Concomitant]
     Active Substance: PREDNISOLONE
     Indication: SYSTEMIC LUPUS ERYTHEMATOSUS
     Dosage: 10MG/DAY
     Dates: start: 20200715
  48. PREDONINE [Concomitant]
     Active Substance: PREDNISOLONE
     Indication: SYSTEMIC LUPUS ERYTHEMATOSUS
     Dosage: 20MG/DAY
     Dates: start: 20191204, end: 20191217
  49. NEXIUM [ESOMEPRAZOLE MAGNESIUM TRIHYDRATE] [Concomitant]
     Dosage: DAILY DOSE 20 MG
     Dates: start: 20190919
  50. BENLYSTA [Concomitant]
     Active Substance: BELIMUMAB
     Dosage: DAILY DOSE 200MG
     Dates: start: 20200902

REACTIONS (2)
  - Interstitial lung disease [Recovering/Resolving]
  - Cell marker increased [Recovering/Resolving]
